FAERS Safety Report 9314597 (Version 2)
Quarter: 2013Q2

REPORT INFORMATION
  Report Type: Spontaneous
  Country: FI (occurrence: FI)
  Receive Date: 20130529
  Receipt Date: 20130614
  Transmission Date: 20140414
  Serious: Yes (Hospitalization)
  Sender: FDA-Public Use
  Company Number: FI-PFIZER INC-2013159057

PATIENT
  Age: 41 Year
  Sex: Female

DRUGS (8)
  1. DEPO-MEDROL [Suspect]
     Indication: ANKYLOSING SPONDYLITIS
     Dosage: 32 MG, SINGLE
     Route: 014
     Dates: start: 20130319, end: 20130319
  2. EFEXOR DEPOT [Concomitant]
     Dosage: 75 MG, UNK
     Route: 048
  3. KALCIPOS-D [Concomitant]
     Dosage: 2 TABLETS PER DAY
     Route: 048
  4. KLOTRIPTYL MITE [Concomitant]
     Dosage: 1 TABLET PER DAY
  5. SOMAC [Concomitant]
     Dosage: 40 MG, 1X/DAY
  6. OPAMOX [Concomitant]
     Dosage: 15 MG, 1-2 TABLET PER DAY
  7. PRONAXEN [Concomitant]
     Dosage: 500 MG, AS NEEDED
  8. NORSPAN [Concomitant]
     Dosage: 10 UG/H
     Route: 062

REACTIONS (5)
  - Injection site reaction [Recovering/Resolving]
  - Pruritus [Recovering/Resolving]
  - Injection site pain [Recovering/Resolving]
  - Injection site swelling [Recovering/Resolving]
  - Infection [Recovering/Resolving]
